FAERS Safety Report 4696236-5 (Version None)
Quarter: 2005Q2

REPORT INFORMATION
  Report Type: 
  Country: None (occurrence: None)
  Receive Date: 20050621
  Receipt Date: 20050315
  Transmission Date: 20051028
  Serious: Yes (Hospitalization, Disabling, Other)
  Sender: FDA-Public Use
  Company Number: 2005GB00540

PATIENT
  Age: 32142 Day
  Sex: Female
  Weight: 78 kg

DRUGS (1)
  1. NOLVADEX [Suspect]
     Indication: BREAST CANCER
     Route: 048
     Dates: start: 19990121, end: 20040205

REACTIONS (3)
  - ARTHRALGIA [None]
  - FALL [None]
  - FEMUR FRACTURE [None]
